FAERS Safety Report 21837013 (Version 2)
Quarter: 2023Q1

REPORT INFORMATION
  Report Type: Spontaneous
  Country: US (occurrence: US)
  Receive Date: 20230109
  Receipt Date: 20230131
  Transmission Date: 20230417
  Serious: Yes (Other)
  Sender: FDA-Public Use
  Company Number: US-drreddys-LIT/USA/23/0159364

PATIENT
  Age: 60 Year
  Sex: Male

DRUGS (8)
  1. HEPARIN SODIUM [Suspect]
     Active Substance: HEPARIN SODIUM
     Indication: Thrombosis
     Dosage: INCREASING BOLUS DOSE
  2. HEPARIN SODIUM [Suspect]
     Active Substance: HEPARIN SODIUM
     Indication: Thrombosis in device
     Dosage: ADDING A INFUSION HEPARIN
  3. HEPARIN SODIUM [Suspect]
     Active Substance: HEPARIN SODIUM
     Dosage: ADMINISTRATION OF HIGHER BOLUS DOSE OF HEPARIN 50 UNITS/KG (4,000UNITS) AND WITH SUPPLEMENTAL HEPARI
     Route: 040
  4. HEPARIN SODIUM [Suspect]
     Active Substance: HEPARIN SODIUM
     Dosage: 50 UNITS/KG (4,000UNITS)
     Route: 040
  5. APIXABAN [Suspect]
     Active Substance: APIXABAN
     Indication: Thrombosis
     Dosage: 5MG ONE HOUR PRIOR TO DIALYSIS
  6. APIXABAN [Suspect]
     Active Substance: APIXABAN
     Indication: Thrombosis in device
  7. SALINE [Suspect]
     Active Substance: SODIUM CHLORIDE
     Indication: Thrombosis
  8. SALINE [Suspect]
     Active Substance: SODIUM CHLORIDE
     Indication: Thrombosis in device
     Dosage: FLUSH HOURLY

REACTIONS (2)
  - Bleeding time prolonged [Unknown]
  - Vascular access site haemorrhage [Unknown]
